FAERS Safety Report 25200028 (Version 1)
Quarter: 2025Q2

REPORT INFORMATION
  Report Type: Spontaneous
  Country: US (occurrence: US)
  Receive Date: 20250415
  Receipt Date: 20250415
  Transmission Date: 20250717
  Serious: No
  Sender: SANOFI AVENTIS
  Company Number: US-SA-2025SA107279

PATIENT
  Sex: Female

DRUGS (4)
  1. DUPIXENT [Suspect]
     Active Substance: DUPILUMAB
     Indication: Dermatitis atopic
     Dosage: 300 MG, QOW
     Route: 058
  2. CLOBETASOL [Concomitant]
     Active Substance: CLOBETASOL
  3. OPZELURA [Concomitant]
     Active Substance: RUXOLITINIB PHOSPHATE
  4. PREDNISONE [Concomitant]
     Active Substance: PREDNISONE

REACTIONS (2)
  - Discomfort [Not Recovered/Not Resolved]
  - Rash [Not Recovered/Not Resolved]
